FAERS Safety Report 16537730 (Version 1)
Quarter: 2019Q3

REPORT INFORMATION
  Report Type: Report from Study
  Country: KR (occurrence: KR)
  Receive Date: 20190708
  Receipt Date: 20190708
  Transmission Date: 20191004
  Serious: Yes (Hospitalization)
  Sender: FDA-Public Use
  Company Number: KR-CELLTRION INC.-2019KR022407

PATIENT

DRUGS (11)
  1. MAGNESIUM OXIDE. [Concomitant]
     Active Substance: MAGNESIUM OXIDE
     Indication: CONSTIPATION PROPHYLAXIS
     Dosage: 2 TAB, TID
     Route: 048
     Dates: start: 20190104
  2. BIOFLOR [Concomitant]
     Indication: PROPHYLAXIS AGAINST DIARRHOEA
     Dosage: 1 PACK, TID
     Route: 048
     Dates: start: 20190319
  3. AGIO [Concomitant]
     Indication: CONSTIPATION PROPHYLAXIS
     Dosage: 1 PACK, QD
     Route: 048
     Dates: start: 20190319
  4. SEPTRIN [Concomitant]
     Active Substance: SULFAMETHOXAZOLE\TRIMETHOPRIM
     Indication: INFECTION PROPHYLAXIS
     Dosage: 1 TAB, QD
     Route: 048
     Dates: start: 20181127
  5. HARNAL [Concomitant]
     Active Substance: TAMSULOSIN HYDROCHLORIDE
     Indication: BENIGN PROSTATIC HYPERPLASIA
     Dosage: 1 TAB, QD
     Route: 048
     Dates: start: 20181228
  6. TRUXIMA [Suspect]
     Active Substance: RITUXIMAB-ABBS
     Indication: DIFFUSE LARGE B-CELL LYMPHOMA
     Dosage: 650 MG PER 3 WEEKS
     Route: 042
     Dates: start: 20181127, end: 20190326
  7. PANTOLOC [PANTOPRAZOLE] [Concomitant]
     Active Substance: PANTOPRAZOLE SODIUM
     Indication: PROPHYLAXIS
     Dosage: 1 TAB, QD
     Route: 048
     Dates: start: 20181125
  8. FLASINYL [Concomitant]
     Indication: ANAL ABSCESS
     Dosage: 1 TAB, TID
     Route: 048
     Dates: start: 20190319
  9. RINOEBASTEL [Concomitant]
     Indication: PROPHYLAXIS
     Dosage: 1 TAB, QD
     Route: 048
     Dates: start: 20190220, end: 20190415
  10. BUSCOPAN [Concomitant]
     Active Substance: BUTYLSCOPOLAMINE BROMIDE
     Indication: ABDOMINAL PAIN
     Dosage: 1 TAB, TID
     Route: 048
     Dates: start: 20190319
  11. BETMIGA [Concomitant]
     Active Substance: MIRABEGRON
     Indication: BENIGN PROSTATIC HYPERPLASIA
     Dosage: 1 TAB, QD
     Route: 048
     Dates: start: 20181228

REACTIONS (1)
  - Anal inflammation [Recovered/Resolved]

NARRATIVE: CASE EVENT DATE: 20190405
